FAERS Safety Report 5775449-5 (Version None)
Quarter: 2008Q2

REPORT INFORMATION
  Report Type: 
  Country: None (occurrence: None)
  Receive Date: 20080613
  Receipt Date: 20080529
  Transmission Date: 20081010
  Serious: Yes (Death)
  Sender: FDA-Public Use
  Company Number: 2008AL006038

PATIENT
  Age: 84 Year
  Sex: Female

DRUGS (6)
  1. DIGOXIN [Suspect]
     Indication: ATRIAL FIBRILLATION
     Dates: start: 20080312, end: 20080322
  2. FOLIC ACID [Concomitant]
  3. NIACIN [Concomitant]
  4. DILTIAZEM [Concomitant]
  5. LEXAPRO [Concomitant]
  6. MULTI-VITAMIN [Concomitant]

REACTIONS (2)
  - LETHARGY [None]
  - SOMNOLENCE [None]
